FAERS Safety Report 6316787-7 (Version None)
Quarter: 2009Q3

REPORT INFORMATION
  Report Type: 
  Country: None (occurrence: None)
  Receive Date: 20090820
  Receipt Date: 20090813
  Transmission Date: 20100115
  Serious: Yes (Hospitalization, Other)
  Sender: FDA-Public Use
  Company Number: AU-ABBOTT-09P-008-0563307-01

PATIENT
  Sex: Male
  Weight: 68.3 kg

DRUGS (19)
  1. RITONAVIR SOFT GELATIN CAPSULES [Suspect]
     Indication: HIV INFECTION
     Route: 048
     Dates: start: 20051024, end: 20061116
  2. RITONAVIR SOFT GELATIN CAPSULES [Suspect]
     Route: 048
     Dates: start: 20061130
  3. SERETIDE [Concomitant]
     Indication: ASTHMA
     Route: 055
     Dates: start: 20060601, end: 20061018
  4. VENTOLIN [Concomitant]
     Indication: ASTHMA
     Route: 055
     Dates: start: 20060601
  5. NILSTAT [Concomitant]
     Indication: LIP SWELLING
     Route: 048
     Dates: start: 20060829, end: 20060925
  6. NILSTAT [Concomitant]
     Indication: TONGUE BLISTERING
  7. KENALOG [Concomitant]
     Indication: LIP SWELLING
     Route: 061
     Dates: start: 20060906, end: 20060910
  8. KENALOG [Concomitant]
     Indication: TONGUE BLISTERING
  9. DIFLUCAN [Concomitant]
     Indication: LIP SWELLING
     Route: 048
     Dates: start: 20060925, end: 20061103
  10. DIFLUCAN [Concomitant]
     Indication: TONGUE BLISTERING
  11. FUNGILIN [Concomitant]
     Indication: LIP SWELLING
     Route: 048
     Dates: start: 20060801, end: 20060829
  12. FUNGILIN [Concomitant]
     Indication: TONGUE BLISTERING
  13. SPIRIVA [Concomitant]
     Indication: ASTHMA
     Route: 055
     Dates: start: 20060705, end: 20060813
  14. SALT WATER GARGLE [Concomitant]
     Indication: ASTHMA
     Dosage: POST SERETIDE
     Route: 048
     Dates: start: 20060901, end: 20061201
  15. LISTERINE [Concomitant]
     Indication: DRUG USE FOR UNKNOWN INDICATION
     Route: 048
     Dates: start: 20060901, end: 20080501
  16. COMBIVIR [Concomitant]
     Indication: HIV INFECTION
     Route: 048
  17. DARUNAVIR [Concomitant]
     Indication: HIV INFECTION
  18. LAMIVUDINE [Concomitant]
     Indication: HIV INFECTION
  19. TENOFOVIR [Concomitant]
     Indication: HIV INFECTION

REACTIONS (2)
  - ASTHMA [None]
  - CUSHING'S SYNDROME [None]
